FAERS Safety Report 5409321-7 (Version None)
Quarter: 2007Q3

REPORT INFORMATION
  Report Type: 
  Country: None (occurrence: None)
  Receive Date: 20070807
  Receipt Date: 20070724
  Transmission Date: 20080115
  Serious: Yes (Death, Hospitalization, Other)
  Sender: FDA-Public Use
  Company Number: 2007EU001672

PATIENT
  Age: 16 Year
  Sex: Male

DRUGS (5)
  1. FK506(TACROLIMUS) FORMULATION UNKNOWN [Suspect]
     Indication: LIVER TRANSPLANT
     Dates: start: 20050101
  2. FK506(TACROLIMUS) FORMULATION UNKNOWN [Suspect]
     Indication: LIVER TRANSPLANT
     Dates: start: 20050101
  3. COTRIMOXAZOLE RATIOPHARM (SULFAMETHOXAZOLE, TRIMETHOPRIM) [Concomitant]
  4. FLUCONAZOLE [Concomitant]
  5. HYDROCORTISONE (HYDROCORTISONE HYDROGEN SUCCINATE) [Concomitant]

REACTIONS (7)
  - HAEMORRHAGE INTRACRANIAL [None]
  - LIVER TRANSPLANT REJECTION [None]
  - PNEUMONIA HERPES VIRAL [None]
  - PNEUMONIA PNEUMOCOCCAL [None]
  - RESPIRATORY DISTRESS [None]
  - SEPSIS [None]
  - VIRAL DNA TEST POSITIVE [None]
